FAERS Safety Report 12314032 (Version 2)
Quarter: 2016Q2

REPORT INFORMATION
  Report Type: Report from Study
  Country: GB (occurrence: GB)
  Receive Date: 20160428
  Receipt Date: 20160429
  Transmission Date: 20160815
  Serious: Yes (Hospitalization)
  Sender: FDA-Public Use
  Company Number: GB-ABBVIE-16P-167-1614650-00

PATIENT
  Age: 66 Year
  Sex: Male

DRUGS (1)
  1. DUODOPA [Suspect]
     Active Substance: CARBIDOPA\LEVODOPA
     Indication: PARKINSON^S DISEASE
     Dosage: 1.9/HOUR, 100 ML CASSETTE
     Route: 050

REACTIONS (7)
  - Pneumonia [Not Recovered/Not Resolved]
  - Blood potassium decreased [Unknown]
  - Haematemesis [Not Recovered/Not Resolved]
  - Malaise [Unknown]
  - Hypertension [Unknown]
  - Abdominal pain [Not Recovered/Not Resolved]
  - Blood phosphorus decreased [Unknown]

NARRATIVE: CASE EVENT DATE: 20160417
